FAERS Safety Report 23516985 (Version 1)
Quarter: 2024Q1

REPORT INFORMATION
  Report Type: Spontaneous
  Country: US (occurrence: None)
  Receive Date: 20240212
  Receipt Date: 20240212
  Transmission Date: 20240410
  Serious: Yes (Hospitalization)
  Sender: FDA-Public Use
  Company Number: None

PATIENT
  Age: 70 Year
  Sex: Female
  Weight: 58.5 kg

DRUGS (1)
  1. PENICILLIN G POTASSIUM [Suspect]
     Active Substance: PENICILLIN G POTASSIUM
     Indication: Syphilis
     Dosage: FREQUENCY : DAILY;?
     Route: 041
     Dates: start: 20240207

REACTIONS (1)
  - Seizure [None]

NARRATIVE: CASE EVENT DATE: 20240212
